FAERS Safety Report 4577811-5 (Version None)
Quarter: 2005Q1

REPORT INFORMATION
  Report Type: 
  Country: None (occurrence: None)
  Receive Date: 20050209
  Receipt Date: 20050121
  Transmission Date: 20050727
  Serious: Yes (Death)
  Sender: FDA-Public Use
  Company Number: US_031199067

PATIENT
  Age: 50 Year
  Sex: Female
  Weight: 61 kg

DRUGS (10)
  1. HUMATROPE [Suspect]
     Indication: HYPOPITUITARISM
     Dosage: 0.48 MG/ 1 DAY
     Dates: start: 20030815, end: 20031120
  2. SYNTHROID [Concomitant]
  3. PREDNISONE [Concomitant]
  4. VICODIN ES [Concomitant]
  5. DILANTIN [Concomitant]
  6. DEPAKOTE [Concomitant]
  7. CELEBREX [Concomitant]
  8. VALIUM [Concomitant]
  9. TIMOLOL MALEATE [Concomitant]
  10. DIPIVEFRIN HYDROCHLORIDE [Concomitant]

REACTIONS (3)
  - CARDIOMEGALY [None]
  - TACHYCARDIA [None]
  - TREATMENT NONCOMPLIANCE [None]
